FAERS Safety Report 15122062 (Version 1)
Quarter: 2018Q3

REPORT INFORMATION
  Report Type: Spontaneous
  Country: FR (occurrence: FR)
  Receive Date: 20180709
  Receipt Date: 20180709
  Transmission Date: 20181010
  Serious: Yes (Other)
  Sender: FDA-Public Use
  Company Number: FR-TEVA-2018-FR-922250

PATIENT
  Age: 48 Year
  Sex: Female

DRUGS (2)
  1. ETOPOSIDE. [Suspect]
     Active Substance: ETOPOSIDE
     Route: 042
     Dates: start: 20180122, end: 20180305
  2. CISPLATINE [Suspect]
     Active Substance: CISPLATIN
     Dosage: 1 CURE TOUTES LES 3 SEMAINES
     Route: 042
     Dates: start: 20180122, end: 20180305

REACTIONS (1)
  - Neutropenia [Recovered/Resolved]

NARRATIVE: CASE EVENT DATE: 20180326
